FAERS Safety Report 12562370 (Version 5)
Quarter: 2017Q1

REPORT INFORMATION
  Report Type: Report from Study
  Country: AU (occurrence: AU)
  Receive Date: 20160715
  Receipt Date: 20170116
  Transmission Date: 20170428
  Serious: Yes (Hospitalization, Other)
  Sender: FDA-Public Use
  Company Number: AU-AMGEN-AUSSP2016088739

PATIENT
  Age: 57 Year
  Sex: Female

DRUGS (2)
  1. REPATHA [Suspect]
     Active Substance: EVOLOCUMAB
     Indication: TYPE IIA HYPERLIPIDAEMIA
     Dosage: 140 MG/ML, Q2WK (FORTNIGHTLY)
     Route: 058
     Dates: start: 20160403
  2. REPATHA [Suspect]
     Active Substance: EVOLOCUMAB
     Indication: CORONARY ARTERY DISEASE

REACTIONS (8)
  - Inappropriate schedule of drug administration [Recovered/Resolved]
  - Rectal haemorrhage [Unknown]
  - Headache [Recovered/Resolved]
  - Carotid artery stenosis [Unknown]
  - Vaginal haemorrhage [Unknown]
  - Drug dose omission [Recovered/Resolved]
  - Transient ischaemic attack [Recovered/Resolved]
  - Malaise [Recovered/Resolved]

NARRATIVE: CASE EVENT DATE: 20160629
